FAERS Safety Report 7798047 (Version 6)
Quarter: 2012Q4

REPORT INFORMATION
  Report Type: 
  Country: JP (occurrence: JP)
  Receive Date: 20110203
  Receipt Date: 20121228
  Transmission Date: 20130627
  Serious: Yes (Life-Threatening, Hospitalization)
  Sender: FDA-Public Use
  Company Number: JP-B.I. PHARMACEUTICALS,INC./RIDGEFIELD-2011-DE-00744GD

PATIENT
  Age: 64 None
  Sex: Male
  Weight: 57 kg

DRUGS (11)
  1. MOBIC [Suspect]
     Indication: ARTHRALGIA
     Dosage: 10 mg
     Route: 048
     Dates: start: 2005, end: 20071221
  2. BAYASPIRIN [Suspect]
     Dosage: 100 mg
  3. DEPAS [Concomitant]
     Dosage: 1DF
  4. MUCOSTA [Concomitant]
     Dosage: 100 mg
  5. HALCION [Concomitant]
     Dosage: 0.5 mg
  6. RENIVACE [Concomitant]
     Dosage: 10 mg
  7. COROHERSER-R [Concomitant]
     Dosage: 100 mg
  8. HARNAL [Concomitant]
     Dosage: 0.2 mg
  9. NELBIS [Concomitant]
     Dosage: 500 mg
  10. SOSEGON [Concomitant]
     Dates: start: 20071221, end: 20071221
  11. DORMICUM [Concomitant]
     Dates: start: 20071221, end: 20071221

REACTIONS (3)
  - Anaemia [Not Recovered/Not Resolved]
  - Small intestinal stenosis [Not Recovered/Not Resolved]
  - Haematochezia [Not Recovered/Not Resolved]
